FAERS Safety Report 7319907 (Version 4)
Quarter: 2012Q4

REPORT INFORMATION
  Report Type: Report from Study
  Country: JP (occurrence: JP)
  Receive Date: 20100315
  Receipt Date: 20121008
  Transmission Date: 20130627
  Serious: Yes (Death, Hospitalization)
  Sender: FDA-Public Use
  Company Number: JP-ROCHE-660422

PATIENT
  Age: 70 Year
  Sex: Male

DRUGS (25)
  1. ROACTEMRA [Suspect]
     Indication: RHEUMATOID ARTHRITIS
     Route: 041
     Dates: start: 20090225, end: 20090225
  2. ROACTEMRA [Suspect]
     Route: 041
     Dates: start: 20090325, end: 20090325
  3. ROACTEMRA [Suspect]
     Route: 041
     Dates: start: 20090422, end: 20090422
  4. PREDNISOLONE [Concomitant]
     Indication: RHEUMATOID ARTHRITIS
     Dosage: DOSE FORM: PERORAL AGENT
     Route: 048
  5. PREDNISOLONE [Concomitant]
     Route: 048
  6. DIGOSIN [Concomitant]
     Route: 048
  7. HALCION [Concomitant]
     Indication: INSOMNIA
     Route: 048
  8. HALCION [Concomitant]
     Route: 048
  9. SENNOSIDE [Concomitant]
     Indication: CONSTIPATION
     Dosage: DOSE FORM: PERORAL AGENT
     Route: 048
  10. LANSOPRAZOLE [Concomitant]
     Indication: GASTRIC ULCER
     Dosage: DRUG REPORTED AS: LANSOPRAZOLE-OD.
     Route: 048
  11. NORVASC [Concomitant]
     Route: 048
  12. PANTOSIN [Concomitant]
     Route: 048
  13. VOLTAREN [Concomitant]
     Route: 054
  14. MOHRUS [Concomitant]
     Dosage: FORM: TAPE.
     Route: 061
  15. PAXIL [Concomitant]
     Indication: DEPRESSION
     Route: 048
  16. BAKTAR [Concomitant]
     Route: 048
     Dates: end: 20120224
  17. ISCOTIN [Concomitant]
     Indication: PROPHYLAXIS
     Route: 048
     Dates: end: 20120224
  18. FLUITRAN [Concomitant]
     Route: 048
  19. DIOVAN [Concomitant]
     Route: 048
     Dates: end: 20120224
  20. PROGRAF [Concomitant]
     Indication: RHEUMATOID ARTHRITIS
     Route: 048
     Dates: end: 20120224
  21. FUROSEMIDE [Concomitant]
     Route: 048
     Dates: end: 20120224
  22. MEXITIL [Concomitant]
     Route: 048
     Dates: end: 20120224
  23. NAUZELIN [Concomitant]
     Route: 048
     Dates: end: 20120224
  24. NITOROL [Concomitant]
     Route: 048
     Dates: end: 20120224
  25. SOLANAX [Concomitant]
     Route: 048
     Dates: end: 20120224

REACTIONS (3)
  - Bursitis [Recovering/Resolving]
  - Rib fracture [Unknown]
  - Interstitial lung disease [Fatal]
